FAERS Safety Report 22186091 (Version 1)
Quarter: 2023Q2

REPORT INFORMATION
  Report Type: Spontaneous
  Country: FR (occurrence: FR)
  Receive Date: 20230407
  Receipt Date: 20230407
  Transmission Date: 20230721
  Serious: Yes (Death, Other)
  Sender: FDA-Public Use
  Company Number: None

PATIENT

DRUGS (1)
  1. RETROVIR [Suspect]
     Active Substance: ZIDOVUDINE
     Indication: Prophylaxis against HIV infection
     Dosage: 0.3 MG/KG, BID
     Route: 042
     Dates: start: 20221120, end: 20221207

REACTIONS (1)
  - Pseudomonas infection [Fatal]

NARRATIVE: CASE EVENT DATE: 20221209
